FAERS Safety Report 21764835 (Version 1)
Quarter: 2022Q4

REPORT INFORMATION
  Report Type: Spontaneous
  Country: US (occurrence: US)
  Receive Date: 20221222
  Receipt Date: 20221222
  Transmission Date: 20230112
  Serious: Yes (Other)
  Sender: FDA-Public Use
  Company Number: US-SABAL THERAPEUTICS LLC-2022-ATH-000032

PATIENT

DRUGS (3)
  1. QDOLO [Suspect]
     Active Substance: TRAMADOL HYDROCHLORIDE
     Indication: Neuropathy peripheral
     Route: 065
  2. GABAPENTIN [Suspect]
     Active Substance: GABAPENTIN
     Indication: Neuropathy peripheral
     Route: 065
  3. PREGABALIN [Suspect]
     Active Substance: PREGABALIN
     Indication: Neuropathy peripheral
     Route: 065

REACTIONS (4)
  - Lupus-like syndrome [Unknown]
  - Drug ineffective for unapproved indication [Unknown]
  - Condition aggravated [Unknown]
  - Off label use [Unknown]
